FAERS Safety Report 10035945 (Version 1)
Quarter: 2014Q1

REPORT INFORMATION
  Report Type: Spontaneous
  Country: US (occurrence: US)
  Receive Date: 20140325
  Receipt Date: 20140325
  Transmission Date: 20141002
  Serious: No
  Sender: FDA-Public Use
  Company Number: US-TEVA-469741USA

PATIENT
  Age: 71 Year
  Sex: Male

DRUGS (2)
  1. FENTANYL [Suspect]
     Indication: BREAKTHROUGH PAIN
     Dosage: 4 PER DAY
     Route: 048
     Dates: end: 201403
  2. FENTANYL [Suspect]
     Dosage: 8 PER DAY
     Route: 048

REACTIONS (3)
  - Drug effect decreased [Not Recovered/Not Resolved]
  - Breakthrough pain [Not Recovered/Not Resolved]
  - Intentional drug misuse [Unknown]
